FAERS Safety Report 7037072-4 (Version None)
Quarter: 2010Q4

REPORT INFORMATION
  Report Type: 
  Country: None (occurrence: None)
  Receive Date: 20101011
  Receipt Date: 20100927
  Transmission Date: 20110411
  Serious: Yes (Hospitalization, Other)
  Sender: FDA-Public Use
  Company Number: PHHY2010US45949

PATIENT
  Sex: Male

DRUGS (7)
  1. EXJADE [Suspect]
     Indication: MULTIPLE MYELOMA
     Dosage: 2500 MG, QD
     Route: 048
     Dates: end: 20100501
  2. EXJADE [Suspect]
     Indication: IRON OVERLOAD
     Dosage: 1500 MG, QD
     Route: 048
     Dates: start: 20090601, end: 20100601
  3. EXJADE [Suspect]
     Dosage: UNK
  4. CYTOXAN [Concomitant]
  5. VELCADE [Concomitant]
  6. REVLIMID [Concomitant]
  7. DEXAMETHASONE [Concomitant]

REACTIONS (3)
  - ASPARTATE AMINOTRANSFERASE INCREASED [None]
  - SERUM FERRITIN INCREASED [None]
  - TRANSPLANT [None]
